FAERS Safety Report 18843748 (Version 1)
Quarter: 2021Q1

REPORT INFORMATION
  Report Type: Report from Study
  Country: US (occurrence: US)
  Receive Date: 20210203
  Receipt Date: 20210203
  Transmission Date: 20210419
  Serious: No
  Sender: FDA-Public Use
  Company Number: US-EXELIXIS-CABO-20027677

PATIENT
  Sex: Female
  Weight: 73.02 kg

DRUGS (4)
  1. CABOMETYX [Suspect]
     Active Substance: CABOZANTINIB S-MALATE
     Dosage: 40 MG, QD ( 2 TABLET OF 20 MG)
     Route: 048
  2. CABOMETYX [Suspect]
     Active Substance: CABOZANTINIB S-MALATE
     Dosage: 20 MG, QD
     Route: 048
  3. CABOMETYX [Suspect]
     Active Substance: CABOZANTINIB S-MALATE
     Dosage: 20 MG, QD
     Route: 048
  4. CABOMETYX [Suspect]
     Active Substance: CABOZANTINIB S-MALATE
     Indication: RENAL CANCER
     Dosage: 60 MG, QD (3 TABLETS OF 20 MG)
     Route: 048
     Dates: start: 20200129

REACTIONS (11)
  - Fatigue [Unknown]
  - Dehydration [Unknown]
  - Blood magnesium decreased [Unknown]
  - Gait inability [Unknown]
  - Thyroid disorder [Unknown]
  - Diarrhoea [Unknown]
  - Rash [Unknown]
  - Temperature intolerance [Unknown]
  - Dizziness [Unknown]
  - Liver function test increased [Recovering/Resolving]
  - Blood blister [Unknown]
